FAERS Safety Report 7600941-8 (Version None)
Quarter: 2011Q3

REPORT INFORMATION
  Report Type: 
  Country: None (occurrence: None)
  Receive Date: 20110711
  Receipt Date: 20110627
  Transmission Date: 20111222
  Serious: Yes (Other)
  Sender: FDA-Public Use
  Company Number: CA-GENENTECH-279458

PATIENT
  Sex: Female
  Weight: 88 kg

DRUGS (6)
  1. XOLAIR [Suspect]
     Indication: ASTHMA
     Dosage: 300 MG, 1/MONTH
     Route: 058
     Dates: start: 20080121
  2. ADVIL LIQUI-GELS [Concomitant]
     Indication: PRODUCT USED FOR UNKNOWN INDICATION
  3. SINGULAIR [Concomitant]
  4. XOLAIR [Suspect]
     Dosage: 150 MG, 1/MONTH
     Route: 058
     Dates: start: 20091201
  5. XOLAIR [Suspect]
     Dosage: 150 MG, 1/MONTH
     Route: 058
     Dates: start: 20100318
  6. ANTIHISTAMINE NOS [Concomitant]
     Indication: HYPERSENSITIVITY

REACTIONS (14)
  - WHEEZING [None]
  - DYSPNOEA [None]
  - PRURITUS [None]
  - BLOOD PRESSURE SYSTOLIC INCREASED [None]
  - BRONCHITIS [None]
  - NASOPHARYNGITIS [None]
  - PNEUMONIA [None]
  - INFLUENZA [None]
  - HYPERSENSITIVITY [None]
  - HEART RATE INCREASED [None]
  - RESPIRATORY DISORDER [None]
  - INCREASED UPPER AIRWAY SECRETION [None]
  - SPUTUM DISCOLOURED [None]
  - DYSPNOEA EXERTIONAL [None]
